FAERS Safety Report 7728939-X (Version None)
Quarter: 2011Q3

REPORT INFORMATION
  Report Type: 
  Country: None (occurrence: None)
  Receive Date: 20110906
  Receipt Date: 20110712
  Transmission Date: 20111222
  Serious: Yes (Disabling, Other)
  Sender: FDA-Public Use
  Company Number: US-US-EMD SERONO, INC.-7080383

PATIENT
  Sex: Male
  Weight: 49 kg

DRUGS (7)
  1. CORTEF [Concomitant]
     Route: 048
  2. SAIZEN [Suspect]
     Indication: GROWTH HORMONE DEFICIENCY
     Route: 058
     Dates: start: 20020901
  3. ANDROGEL [Concomitant]
  4. SYNTHROID [Concomitant]
     Route: 048
  5. CALCIUM 500/D 500 [Concomitant]
     Route: 048
  6. CHEWABLE MULTIVITAMIN [Concomitant]
     Route: 046
  7. SOLU-CORTEF [Concomitant]
     Route: 030

REACTIONS (2)
  - EPIPHYSIOLYSIS [None]
  - BLINDNESS [None]
